FAERS Safety Report 14871787 (Version 1)
Quarter: 2018Q2

REPORT INFORMATION
  Report Type: Spontaneous
  Country: PL (occurrence: PL)
  Receive Date: 20180509
  Receipt Date: 20180509
  Transmission Date: 20180711
  Serious: Yes (Hospitalization)
  Sender: FDA-Public Use
  Company Number: PL-NOVAST LABORATORIES, LTD-PL-2018NOV000197

PATIENT
  Age: 17 Year
  Sex: Female

DRUGS (3)
  1. KETONAL                            /00321701/ [Suspect]
     Active Substance: KETOPROFEN
     Indication: ANALGESIC THERAPY
     Dosage: 100 MG, BID (KETONAL FORTE)
  2. DICLOFENAC [Suspect]
     Active Substance: DICLOFENAC
     Indication: ANALGESIC THERAPY
     Dosage: 50 MG, Q.D ? B.I.D
  3. BUTALBITAL, ACETAMINOPHEN, AND CAFFEINE [Suspect]
     Active Substance: ACETAMINOPHEN\BUTALBITAL\CAFFEINE
     Indication: ANALGESIC THERAPY
     Dosage: 500 MG, TID
     Route: 048

REACTIONS (1)
  - Acute kidney injury [Recovering/Resolving]
